FAERS Safety Report 8127422-X (Version None)
Quarter: 2012Q1

REPORT INFORMATION
  Report Type: 
  Country: None (occurrence: None)
  Receive Date: 20120210
  Receipt Date: 20120206
  Transmission Date: 20120608
  Serious: Yes (Other)
  Sender: FDA-Public Use
  Company Number: US-ROXANE LABORATORIES, INC.-2012-RO-00611RO

PATIENT
  Sex: Female

DRUGS (2)
  1. PREDNISONE TAB [Suspect]
     Route: 048
  2. PREDNISONE TAB [Suspect]

REACTIONS (6)
  - MUSCLE TWITCHING [None]
  - RESPIRATORY TRACT CONGESTION [None]
  - TACHYCARDIA [None]
  - EXTRASYSTOLES [None]
  - DIZZINESS [None]
  - UNEVALUABLE EVENT [None]
